FAERS Safety Report 12440928 (Version 1)
Quarter: 2016Q2

REPORT INFORMATION
  Report Type: Spontaneous
  Country: US (occurrence: US)
  Receive Date: 20160607
  Receipt Date: 20160607
  Transmission Date: 20160815
  Serious: No
  Sender: FDA-Public Use
  Company Number: US-NOVEN PHARMACEUTICALS, INC.-US2016000466

PATIENT

DRUGS (1)
  1. DAYTRANA [Suspect]
     Active Substance: METHYLPHENIDATE
     Indication: PRODUCT USED FOR UNKNOWN INDICATION
     Dosage: 50 MG (USING 20MG AND 30MG TOGETHER), QD
     Route: 062

REACTIONS (7)
  - Wrong technique in product usage process [Recovered/Resolved]
  - Application site erythema [Unknown]
  - Application site discolouration [Unknown]
  - Drug administered to patient of inappropriate age [Recovered/Resolved]
  - Overdose [Recovered/Resolved]
  - Incorrect drug administration duration [Recovered/Resolved]
  - Application site irritation [Unknown]
